FAERS Safety Report 4417805-3 (Version None)
Quarter: 2004Q2

REPORT INFORMATION
  Report Type: 
  Country: None (occurrence: None)
  Receive Date: 20040623
  Receipt Date: 20040422
  Transmission Date: 20050107
  Serious: Yes (Hospitalization, Other)
  Sender: FDA-Public Use
  Company Number: HQWYE577623APR04

PATIENT

DRUGS (2)
  1. RAPAMUNE [Suspect]
     Indication: PROPHYLAXIS AGAINST TRANSPLANT REJECTION
     Dosage: 1 MG 1X PER 1 DAY, ORAL
     Route: 048
  2. NEORAL [Concomitant]

REACTIONS (2)
  - LOCALISED INFECTION [None]
  - SKIN ULCER [None]
